FAERS Safety Report 6509416-0 (Version None)
Quarter: 2009Q4

REPORT INFORMATION
  Report Type: 
  Country: None (occurrence: None)
  Receive Date: 20091222
  Receipt Date: 20091215
  Transmission Date: 20100525
  Serious: Yes (Other)
  Sender: FDA-Public Use
  Company Number: US-JNJFOC-20091007142

PATIENT
  Sex: Female
  Weight: 29.94 kg

DRUGS (2)
  1. TYLENOL (CAPLET) [Suspect]
     Indication: PAIN
     Dosage: 320MG (10ML) ONE TO TWO TIMES A DAY AS NEEDED
  2. TYLENOL (CAPLET) [Suspect]
     Indication: HEADACHE
     Dosage: 320MG (10ML) ONE TO TWO TIMES A DAY AS NEEDED

REACTIONS (4)
  - BOWEL MOVEMENT IRREGULARITY [None]
  - DYSURIA [None]
  - TRANSMISSION OF AN INFECTIOUS AGENT VIA A MEDICINAL PRODUCT [None]
  - VOMITING [None]
